FAERS Safety Report 7731020-7 (Version None)
Quarter: 2011Q3

REPORT INFORMATION
  Report Type: 
  Country: None (occurrence: None)
  Receive Date: 20110906
  Receipt Date: 20110831
  Transmission Date: 20111222
  Serious: Yes (Other)
  Sender: FDA-Public Use
  Company Number: JP-PFIZER INC-2011203689

PATIENT
  Age: 81 Year
  Sex: Female

DRUGS (11)
  1. MAGNESIUM OXIDE [Concomitant]
     Indication: CONSTIPATION
     Dosage: UNK
     Route: 048
  2. CELECOXIB [Concomitant]
     Indication: BACK PAIN
     Dosage: UNK
     Route: 048
  3. LORAZEPAM [Concomitant]
     Indication: ANXIOLYTIC THERAPY
     Dosage: UNK
     Route: 048
  4. LYRICA [Suspect]
     Indication: LUMBAR SPINAL STENOSIS
     Dosage: 75 MG, 1X/DAY
     Route: 048
     Dates: start: 20110606, end: 20110627
  5. LOXONIN [Concomitant]
     Indication: BACK PAIN
     Dosage: UNK
     Route: 061
  6. PROMACTA [Concomitant]
     Indication: GASTRITIS
     Dosage: UNK
     Route: 048
  7. LANSOPRAZOLE [Concomitant]
     Indication: GASTRIC ULCER
     Dosage: UNK
     Route: 048
  8. LASIX [Concomitant]
     Indication: HYPERTENSION
     Dosage: UNK
     Route: 048
  9. VESICARE [Concomitant]
     Indication: NOCTURIA
     Dosage: UNK
     Route: 048
  10. OPALMON [Concomitant]
     Indication: HYPOAESTHESIA
     Dosage: UNK
     Route: 048
  11. LUVOX [Concomitant]
     Indication: DEPRESSION
     Dosage: UNK
     Route: 048

REACTIONS (4)
  - BLOOD AMYLASE INCREASED [None]
  - MYALGIA [None]
  - BLOOD CREATINE PHOSPHOKINASE INCREASED [None]
  - BLOOD POTASSIUM DECREASED [None]
